FAERS Safety Report 16210305 (Version 1)
Quarter: 2019Q2

REPORT INFORMATION
  Report Type: Report from Study
  Country: None (occurrence: ES)
  Receive Date: 20190418
  Receipt Date: 20190418
  Transmission Date: 20190711
  Serious: Yes (Death)
  Sender: FDA-Public Use
  Company Number: ES-ABBVIE-19S-144-2747707-00

PATIENT
  Age: 73 Year
  Sex: Female

DRUGS (2)
  1. TRAMADOL. [Concomitant]
     Active Substance: TRAMADOL
     Indication: BACK PAIN
     Route: 048
  2. DUODOPA [Suspect]
     Active Substance: CARBIDOPA\LEVODOPA
     Indication: PARKINSON^S DISEASE
     Route: 050
     Dates: start: 20180701

REACTIONS (1)
  - Sudden death [Fatal]

NARRATIVE: CASE EVENT DATE: 20190412
